FAERS Safety Report 6219202-7 (Version None)
Quarter: 2009Q2

REPORT INFORMATION
  Report Type: 
  Country: None (occurrence: None)
  Receive Date: 20090609
  Receipt Date: 20090601
  Transmission Date: 20091009
  Serious: Yes (Hospitalization)
  Sender: FDA-Public Use
  Company Number: GB-BRISTOL-MYERS SQUIBB COMPANY-12745667

PATIENT
  Age: 73 Year
  Sex: Male
  Weight: 85 kg

DRUGS (10)
  1. IRBESARTAN [Suspect]
     Indication: HYPERTENSION
     Dosage: STOPPED ON 05-OCT-2004 AND ESTIMATED RESTART DATE 19-OCT-2004
     Dates: start: 20040427
  2. WARFARIN SODIUM [Suspect]
     Indication: PROPHYLAXIS
     Dates: start: 20040427, end: 20041004
  3. BLINDED: PLACEBO [Suspect]
     Indication: HYPERTENSION
     Dosage: STOPPED ON 05-OCT-2004 AND ESTIMATED RESTART DATE 19-OCT-2004
     Dates: start: 20040427
  4. DICLOFENAC SODIUM [Concomitant]
     Dates: start: 20040928, end: 20041006
  5. TRANEXAMIC ACID [Concomitant]
  6. AMOXICILLIN [Concomitant]
  7. ENSURE [Concomitant]
  8. VOLTAREN [Concomitant]
  9. LANSOPRAZOLE [Concomitant]
  10. METRONIDAZOLE HCL [Concomitant]

REACTIONS (2)
  - DUODENAL ULCER [None]
  - GASTROINTESTINAL HAEMORRHAGE [None]
